FAERS Safety Report 8777655 (Version 1)
Quarter: 2012Q4

REPORT INFORMATION
  Report Type: 
  Country: US (occurrence: US)
  Receive Date: 20120904
  Receipt Date: 20120904
  Transmission Date: 20130627
  Serious: No
  Sender: FDA-Public Use
  Company Number: US-ELI_LILLY_AND_COMPANY-US201208009292

PATIENT
  Age: 62 Year
  Sex: Female

DRUGS (9)
  1. CYMBALTA [Suspect]
     Indication: FIBROMYALGIA
     Dosage: 30 mg, qd
  2. CYMBALTA [Suspect]
     Dosage: 30 mg, qd
  3. CYMBALTA [Suspect]
     Dosage: 60 mg, qd
  4. MAGNESIUM [Concomitant]
     Dosage: 1000 DF, UNK
  5. OMEPRAZOLE [Concomitant]
  6. SIMVASTATIN [Concomitant]
  7. VITAMIN D [Concomitant]
  8. CALCIUM [Concomitant]
  9. FISH OIL [Concomitant]

REACTIONS (17)
  - Liver disorder [Unknown]
  - Blister [Unknown]
  - Dry skin [Unknown]
  - Irritable bowel syndrome [Unknown]
  - Eye disorder [Unknown]
  - Hepatic enzyme increased [Unknown]
  - Macular degeneration [Unknown]
  - Bruxism [Unknown]
  - Insomnia [Unknown]
  - Pruritus [Unknown]
  - Nausea [Unknown]
  - Decreased appetite [Unknown]
  - Muscle spasms [Unknown]
  - Burning sensation [Unknown]
  - Depressed level of consciousness [Unknown]
  - Intentional drug misuse [Unknown]
  - Off label use [Unknown]
